FAERS Safety Report 6148739-4 (Version None)
Quarter: 2009Q2

REPORT INFORMATION
  Report Type: 
  Country: None (occurrence: None)
  Receive Date: 20090408
  Receipt Date: 20090331
  Transmission Date: 20091009
  Serious: Yes (Other)
  Sender: FDA-Public Use
  Company Number: GB-BAXTER-2009BH005100

PATIENT
  Sex: Female

DRUGS (9)
  1. CYCLOPHOSPHAMIDE [Suspect]
     Indication: CHEMOTHERAPY
     Route: 065
  2. EPIRUBICIN [Suspect]
     Indication: CHEMOTHERAPY
  3. FLUOROURACIL [Suspect]
     Indication: CHEMOTHERAPY
  4. EPIRUBICIN [Concomitant]
     Route: 065
  5. FLUOROURACIL [Concomitant]
     Indication: CHEMOTHERAPY
     Route: 065
  6. ANTI SICKNESS TABLETS [Concomitant]
     Indication: PROPHYLAXIS
     Route: 065
  7. PERIDOXINE [Concomitant]
     Indication: CHEMOTHERAPY
     Route: 065
  8. MOUTH WASHES [Concomitant]
     Indication: CHEMOTHERAPY
     Route: 065
  9. CREAMS [Concomitant]
     Indication: CHEMOTHERAPY
     Route: 065

REACTIONS (3)
  - HYPERSENSITIVITY [None]
  - RASH PRURITIC [None]
  - URTICARIA [None]
